FAERS Safety Report 5294695-0 (Version None)
Quarter: 2007Q2

REPORT INFORMATION
  Report Type: 
  Country: None (occurrence: None)
  Receive Date: 20070412
  Receipt Date: 20070328
  Transmission Date: 20071010
  Serious: Yes (Hospitalization)
  Sender: FDA-Public Use
  Company Number: US-AMGEN-US200401

PATIENT
  Sex: Male

DRUGS (15)
  1. PANITUMUMAB [Suspect]
     Indication: COLORECTAL CANCER
     Route: 042
     Dates: start: 20060802, end: 20070131
  2. IRINOTECAN HCL [Concomitant]
     Route: 042
  3. FLUOROURACIL [Concomitant]
     Route: 042
  4. FOLINIC ACID [Concomitant]
     Route: 042
  5. AVASTIN [Concomitant]
     Route: 042
  6. OXYCODONE HCL [Concomitant]
     Route: 065
  7. ZOFRAN [Concomitant]
     Route: 065
  8. OXYCONTIN [Concomitant]
     Route: 065
  9. DECADRON [Concomitant]
  10. ATROPINE [Concomitant]
     Route: 065
  11. IMODIUM [Concomitant]
     Route: 065
  12. COMPAZINE [Concomitant]
     Route: 065
  13. LEXAPRO [Concomitant]
     Route: 065
  14. MORPHINE [Concomitant]
     Route: 065
  15. ARANESP [Concomitant]
     Route: 065
     Dates: start: 20060913

REACTIONS (1)
  - PULMONARY EMBOLISM [None]
